FAERS Safety Report 4799059-1 (Version None)
Quarter: 2005Q4

REPORT INFORMATION
  Report Type: 
  Country: None (occurrence: None)
  Receive Date: 20051013
  Receipt Date: 20050930
  Transmission Date: 20060501
  Serious: Yes (Other)
  Sender: FDA-Public Use
  Company Number: 200511952BWH

PATIENT
  Age: 55 Year
  Sex: Female

DRUGS (11)
  1. CIPRO [Suspect]
     Indication: URINARY TRACT INFECTION
     Dosage: 500 MG, QD, ORAL
     Route: 048
     Dates: start: 20050111, end: 20050115
  2. WELLBUTRIN SR [Concomitant]
  3. SEROQUEL [Concomitant]
  4. LAMICTAL [Concomitant]
  5. GEODON [Concomitant]
  6. KLONOPIN [Concomitant]
  7. GLUCOSAMINE CHONDROITIN [Concomitant]
  8. PREMARIN [Concomitant]
  9. LESCOL XL [Concomitant]
  10. CALTRATE [Concomitant]
  11. NEURONTIN [Concomitant]

REACTIONS (4)
  - ABNORMAL FAECES [None]
  - COLONIC POLYP [None]
  - HAEMORRHOIDS [None]
  - THROMBOSIS [None]
